FAERS Safety Report 25631923 (Version 1)
Quarter: 2025Q3

REPORT INFORMATION
  Report Type: Spontaneous
  Country: EU (occurrence: EU)
  Receive Date: 20250801
  Receipt Date: 20250801
  Transmission Date: 20251020
  Serious: Yes (Life-Threatening)
  Sender: JOHNSON AND JOHNSON
  Company Number: None

PATIENT
  Age: 19 Year
  Sex: Male

DRUGS (1)
  1. DARZALEX [Suspect]
     Active Substance: DARATUMUMAB
     Indication: Nephrotic syndrome
     Route: 058
     Dates: start: 20250716, end: 20250716

REACTIONS (5)
  - Anaphylactic reaction [Recovered/Resolved]
  - Face oedema [Recovered/Resolved]
  - Cough [Recovered/Resolved]
  - Oral mucosal erythema [Recovered/Resolved]
  - Aphonia [Recovered/Resolved]

NARRATIVE: CASE EVENT DATE: 20250716
